FAERS Safety Report 18519669 (Version 1)
Quarter: 2020Q4

REPORT INFORMATION
  Report Type: Spontaneous
  Country: US (occurrence: US)
  Receive Date: 20201119
  Receipt Date: 20201119
  Transmission Date: 20210114
  Serious: No
  Sender: FDA-Public Use
  Company Number: US-JNJFOC-20201130172

PATIENT
  Age: 80 Year
  Sex: Male
  Weight: 77.18 kg

DRUGS (2)
  1. ZYRTEC [Suspect]
     Active Substance: CETIRIZINE HYDROCHLORIDE
     Indication: PRODUCT USED FOR UNKNOWN INDICATION
     Dosage: HCP RECOMMENDED IT
     Route: 048
     Dates: start: 20201111, end: 20201111
  2. ZYRTEC [Suspect]
     Active Substance: CETIRIZINE HYDROCHLORIDE
     Dosage: HCP RECOMMENDED IT; LAST ADMIN DATE: 12-NOV-2020
     Route: 048
     Dates: start: 20201112

REACTIONS (1)
  - Headache [Recovered/Resolved]

NARRATIVE: CASE EVENT DATE: 20201111
